FAERS Safety Report 6456387-1 (Version None)
Quarter: 2009Q4

REPORT INFORMATION
  Report Type: 
  Country: None (occurrence: None)
  Receive Date: 20091125
  Receipt Date: 20091112
  Transmission Date: 20100525
  Serious: Yes (Other)
  Sender: FDA-Public Use
  Company Number: PHHY2009BR49704

PATIENT
  Age: 62 Year
  Sex: Female

DRUGS (1)
  1. ACLASTA [Suspect]
     Dosage: UNK
     Dates: start: 20091110

REACTIONS (11)
  - ASTHENIA [None]
  - CONVULSION [None]
  - INSOMNIA [None]
  - LOCAL SWELLING [None]
  - MALAISE [None]
  - MUSCLE RIGIDITY [None]
  - MYALGIA [None]
  - PAIN [None]
  - PYREXIA [None]
  - SPEECH DISORDER [None]
  - TREMOR [None]
